FAERS Safety Report 8622898-3 (Version None)
Quarter: 2012Q3

REPORT INFORMATION
  Report Type: 
  Country: None (occurrence: None)
  Receive Date: 20120827
  Receipt Date: 20120820
  Transmission Date: 20120928
  Serious: Yes (Other)
  Sender: FDA-Public Use
  Company Number: PHEH2012US015295

PATIENT
  Sex: Female

DRUGS (1)
  1. DIOVAN [Suspect]
     Dosage: 320 MG, QD

REACTIONS (6)
  - PAIN IN EXTREMITY [None]
  - UPPER EXTREMITY MASS [None]
  - ABSCESS [None]
  - STRESS [None]
  - IMMUNE SYSTEM DISORDER [None]
  - STAPHYLOCOCCAL INFECTION [None]
